FAERS Safety Report 7250435-7 (Version None)
Quarter: 2011Q1

REPORT INFORMATION
  Report Type: 
  Country: None (occurrence: None)
  Receive Date: 20110128
  Receipt Date: 20110118
  Transmission Date: 20110831
  Serious: Yes (Hospitalization)
  Sender: FDA-Public Use
  Company Number: US-WATSON-2011-00876

PATIENT
  Age: 39 Year
  Sex: Male
  Weight: 65 kg

DRUGS (3)
  1. AMIODARONE [Suspect]
     Indication: VENTRICULAR ARRHYTHMIA
     Dosage: 400 MG, DAILY
  2. SOTALOL (WATSON LABORATORIES) [Suspect]
     Indication: VENTRICULAR ARRHYTHMIA
     Dosage: 160 MG, BID
  3. PROCAINAMIDE [Suspect]
     Indication: VENTRICULAR ARRHYTHMIA
     Dosage: 2 G, TID

REACTIONS (6)
  - COMPLICATIONS OF TRANSPLANTED HEART [None]
  - ATRIOVENTRICULAR BLOCK [None]
  - VISION BLURRED [None]
  - DIZZINESS [None]
  - NAUSEA [None]
  - CARDIAC ARREST [None]
